FAERS Safety Report 4335120-3 (Version None)
Quarter: 2004Q2

REPORT INFORMATION
  Report Type: 
  Country: None (occurrence: None)
  Receive Date: 20040408
  Receipt Date: 20040213
  Transmission Date: 20050107
  Serious: Yes (Other)
  Sender: FDA-Public Use
  Company Number: PHFR2004GB01024

PATIENT
  Sex: Female

DRUGS (6)
  1. CLOZARIL [Suspect]
     Dosage: 300 MG ACCIDENTAL EXPOSURE
  2. FLUPHENAZINE [Concomitant]
     Indication: SCHIZOPHRENIA
     Dosage: 200MG/DAY
     Route: 030
  3. CHLORPROMAZINE [Concomitant]
     Indication: SCHIZOPHRENIA
     Dosage: 100MG/DAY
     Route: 048
  4. PROCYCLIDINE [Concomitant]
     Dosage: 5 MG, TID
     Route: 048
  5. CARBAMAZEPINE [Concomitant]
     Indication: SCHIZOPHRENIA
     Dosage: 100 MG, QID
     Route: 048
  6. GLICLAZIDE [Concomitant]
     Indication: DIABETES MELLITUS
     Dosage: 80MG/DAY
     Route: 048

REACTIONS (1)
  - ACCIDENTAL EXPOSURE [None]
